FAERS Safety Report 17423440 (Version 1)
Quarter: 2020Q1

REPORT INFORMATION
  Report Type: Spontaneous
  Country: US (occurrence: US)
  Receive Date: 20200131
  Receipt Date: 20200131
  Transmission Date: 20200409
  Serious: Yes (Death)
  Sender: FDA-Public Use
  Company Number: None

PATIENT
  Sex: Male

DRUGS (5)
  1. EPCLUSA [Suspect]
     Active Substance: SOFOSBUVIR\VELPATASVIR
     Indication: HEPATITIS VIRAL
     Dosage: ?          OTHER DOSE:1 TABLET;?
     Route: 048
     Dates: start: 20191206
  2. EPCLUSA [Suspect]
     Active Substance: SOFOSBUVIR\VELPATASVIR
     Indication: HEPATITIS C
     Dosage: ?          OTHER DOSE:1 TABLET;?
     Route: 048
     Dates: start: 20191206
  3. EPCLUSA [Suspect]
     Active Substance: SOFOSBUVIR\VELPATASVIR
     Indication: HEPATOCELLULAR CARCINOMA
     Dosage: ?          OTHER DOSE:1 TABLET;?
     Route: 048
     Dates: start: 20191206
  4. EPCLUSA [Suspect]
     Active Substance: SOFOSBUVIR\VELPATASVIR
     Indication: THROMBOCYTOPENIA
     Dosage: ?          OTHER DOSE:1 TABLET;?
     Route: 048
     Dates: start: 20191206
  5. EPCLUSA [Suspect]
     Active Substance: SOFOSBUVIR\VELPATASVIR
     Indication: LIVER DISORDER
     Dosage: ?          OTHER DOSE:1 TABLET;?
     Route: 048
     Dates: start: 20191206

REACTIONS (2)
  - Treatment noncompliance [None]
  - Influenza like illness [None]
